FAERS Safety Report 17377861 (Version 1)
Quarter: 2020Q1

REPORT INFORMATION
  Report Type: Spontaneous
  Country: US (occurrence: US)
  Receive Date: 20200206
  Receipt Date: 20200206
  Transmission Date: 20200409
  Serious: Yes (Other)
  Sender: FDA-Public Use
  Company Number: US-AMGEN-USASP2020015718

PATIENT
  Age: 71 Year
  Sex: Female

DRUGS (7)
  1. ROGAINE [Suspect]
     Active Substance: MINOXIDIL
     Indication: ALOPECIA
     Dosage: UNK
     Route: 065
     Dates: start: 201901, end: 201901
  2. CREATINE [Concomitant]
     Active Substance: CREATINE
  3. ROGAINE [Suspect]
     Active Substance: MINOXIDIL
     Dosage: UNK
     Route: 065
     Dates: start: 202001
  4. PROLIA [Suspect]
     Active Substance: DENOSUMAB
     Indication: OSTEOPOROSIS POSTMENOPAUSAL
     Dosage: 60 MILLIGRAM, Q6MO
     Route: 065
  5. CARNITINE [Concomitant]
     Active Substance: CARNITINE
  6. FOLIC ACID. [Concomitant]
     Active Substance: FOLIC ACID
  7. COENZYME Q10 [Concomitant]
     Active Substance: UBIDECARENONE

REACTIONS (14)
  - Periodontal disease [Unknown]
  - Cystitis [Unknown]
  - Mitochondrial myopathy [Not Recovered/Not Resolved]
  - Visual impairment [Unknown]
  - Fat necrosis [Unknown]
  - Arterial disorder [Unknown]
  - Lipoma [Recovering/Resolving]
  - Alopecia [Not Recovered/Not Resolved]
  - Seborrhoeic dermatitis [Not Recovered/Not Resolved]
  - Malpositioned teeth [Unknown]
  - Fall [Unknown]
  - Blood cholesterol increased [Not Recovered/Not Resolved]
  - Back pain [Not Recovered/Not Resolved]
  - Clavicle fracture [Recovering/Resolving]

NARRATIVE: CASE EVENT DATE: 2019
